FAERS Safety Report 9421914 (Version 1)
Quarter: 2013Q3

REPORT INFORMATION
  Report Type: Spontaneous
  Country: US (occurrence: US)
  Receive Date: 20130726
  Receipt Date: 20130726
  Transmission Date: 20140515
  Serious: No
  Sender: FDA-Public Use
  Company Number: US-PFIZER INC-2013217175

PATIENT
  Age: 63 Year
  Sex: Female
  Weight: 66.21 kg

DRUGS (5)
  1. NEURONTIN [Suspect]
     Dosage: 300 MG, 1X/DAY (AT NIGHT)
     Dates: end: 201307
  2. NEURONTIN [Suspect]
     Dosage: UNK
     Dates: start: 201307
  3. LYRICA [Suspect]
     Indication: DIABETIC NEUROPATHY
     Dosage: 50 MG, 2X/DAY
     Route: 048
     Dates: start: 201307, end: 201307
  4. GLIPIZIDE [Suspect]
     Dosage: UNK
  5. METFORMIN HCL [Suspect]
     Indication: DIABETES MELLITUS
     Dosage: UNK

REACTIONS (4)
  - Local swelling [Recovered/Resolved]
  - Weight decreased [Unknown]
  - Hangover [Unknown]
  - Somnolence [Unknown]
